FAERS Safety Report 6888215-4 (Version None)
Quarter: 2010Q3

REPORT INFORMATION
  Report Type: 
  Country: None (occurrence: None)
  Receive Date: 20100730
  Receipt Date: 20100726
  Transmission Date: 20110219
  Serious: Yes (Life-Threatening, Hospitalization)
  Sender: FDA-Public Use
  Company Number: US-JNJFOC-20100708489

PATIENT
  Sex: Female
  Weight: 62.6 kg

DRUGS (4)
  1. ULTRAM [Suspect]
     Indication: MUSCULOSKELETAL PAIN
     Route: 048
  2. ULTRAM [Suspect]
     Route: 048
  3. ULTRAM [Suspect]
     Indication: INJURY
     Route: 048
  4. ULTRAM [Suspect]
     Route: 048

REACTIONS (7)
  - CARDIAC ARREST [None]
  - DISTURBANCE IN SOCIAL BEHAVIOUR [None]
  - DRUG DEPENDENCE [None]
  - OVERDOSE [None]
  - SUICIDAL IDEATION [None]
  - SUICIDE ATTEMPT [None]
  - TREATMENT NONCOMPLIANCE [None]
